FAERS Safety Report 7237106-8 (Version None)
Quarter: 2011Q1

REPORT INFORMATION
  Report Type: 
  Country: None (occurrence: None)
  Receive Date: 20110121
  Receipt Date: 20110113
  Transmission Date: 20110831
  Serious: Yes (Other)
  Sender: FDA-Public Use
  Company Number: US-ASTRAZENECA-2008UW09160

PATIENT
  Age: 491 Month
  Sex: Female
  Weight: 127.9 kg

DRUGS (24)
  1. SEROQUEL [Suspect]
     Dosage: 25MG, 100MG, 300MG
     Route: 048
     Dates: start: 20031006, end: 20040203
  2. SEROQUEL [Suspect]
     Dosage: 25MG, 100MG, 300MG
     Route: 048
     Dates: start: 20031006, end: 20040203
  3. SEROQUEL [Suspect]
     Dosage: 25MG, 100MG, 300MG
     Route: 048
     Dates: start: 20040302, end: 20060227
  4. ALBUTEROL [Concomitant]
     Dates: start: 20020205
  5. SEROQUEL [Suspect]
     Indication: DEPRESSION
     Dosage: 25MG, 100MG, 200MG, 300MG
     Route: 048
     Dates: start: 20020621, end: 20031001
  6. SEROQUEL [Suspect]
     Route: 048
     Dates: start: 20020621
  7. EFFEXOR [Concomitant]
     Dosage: 75MG, 150MG
     Dates: start: 20020101, end: 20060101
  8. PSEUDO/GUAIF/DM [Concomitant]
     Dosage: 30-800-45 MG TER
     Dates: start: 20020313
  9. SINGULAIR [Concomitant]
     Dates: start: 20020205
  10. LIPITOR [Concomitant]
     Indication: HYPERLIPIDAEMIA
     Dates: start: 20040614
  11. ZITHROMAX [Concomitant]
     Dates: start: 20020313
  12. CARDEC DM [Concomitant]
     Dosage: 60-4-15 MG/5 ML
     Dates: start: 20020313
  13. SEROQUEL [Suspect]
     Indication: ANXIETY
     Dosage: 25MG, 100MG, 200MG, 300MG
     Route: 048
     Dates: start: 20020621, end: 20031001
  14. SEROQUEL [Suspect]
     Route: 048
     Dates: start: 20020621
  15. KLONOPIN [Concomitant]
     Dates: start: 20020621
  16. APAP/BUTALBITAL/CAFF [Concomitant]
     Dosage: 325-50-40 MG
     Dates: start: 20020614
  17. ADVAIR DISKUS 100/50 [Concomitant]
     Dosage: 250/50 0.25- 0.05MG
     Dates: start: 20020205
  18. SEROQUEL [Suspect]
     Dosage: 25MG, 100MG, 300MG
     Route: 048
     Dates: start: 20040302, end: 20060227
  19. CELEXA [Concomitant]
     Dates: start: 20020614
  20. EFFEXOR [Concomitant]
     Dates: start: 20020621
  21. METHYLPREDNISOLONE [Concomitant]
     Dates: start: 20020313
  22. NIFEDIPINE [Concomitant]
     Dates: start: 20020205
  23. LISINOPRIL [Concomitant]
     Indication: HYPERTENSION
     Dates: start: 20040601
  24. ALPRAZOLAM [Concomitant]
     Dates: start: 20020313

REACTIONS (3)
  - DIABETES MELLITUS [None]
  - UTERINE DISORDER [None]
  - DIABETIC NEUROPATHY [None]
